FAERS Safety Report 7929874-4 (Version None)
Quarter: 2011Q4

REPORT INFORMATION
  Report Type: 
  Country: None (occurrence: None)
  Receive Date: 20111121
  Receipt Date: 20111116
  Transmission Date: 20120403
  Serious: No
  Sender: FDA-Public Use
  Company Number: US-PFIZER INC-2011281504

PATIENT
  Sex: Female
  Weight: 74.83 kg

DRUGS (2)
  1. IBUPROFEN (ADVIL) [Suspect]
     Indication: INFLAMMATION
  2. IBUPROFEN (ADVIL) [Suspect]
     Indication: PAIN
     Dosage: DAILY
     Route: 048

REACTIONS (3)
  - MALAISE [None]
  - ABDOMINAL DISCOMFORT [None]
  - NAUSEA [None]
